FAERS Safety Report 20157261 (Version 2)
Quarter: 2025Q3

REPORT INFORMATION
  Report Type: Spontaneous
  Country: EU (occurrence: EU)
  Receive Date: 20211207
  Receipt Date: 20250718
  Transmission Date: 20251020
  Serious: Yes (Death, Hospitalization)
  Sender: MYLAN
  Company Number: None

PATIENT
  Age: 80 Year
  Sex: Male

DRUGS (72)
  1. NEURONTIN [Interacting]
     Active Substance: GABAPENTIN
     Indication: Pain
     Dosage: 300 MILLIGRAM, TID, EVERY 8 H,DOSE TITRATED TO 300MGX3
     Dates: start: 20210403
  2. NEURONTIN [Interacting]
     Active Substance: GABAPENTIN
     Dosage: 300 MILLIGRAM, TID, EVERY 8 H,DOSE TITRATED TO 300MGX3
     Route: 048
     Dates: start: 20210403
  3. NEURONTIN [Interacting]
     Active Substance: GABAPENTIN
     Dosage: 300 MILLIGRAM, TID, EVERY 8 H,DOSE TITRATED TO 300MGX3
     Route: 048
     Dates: start: 20210403
  4. NEURONTIN [Interacting]
     Active Substance: GABAPENTIN
     Dosage: 300 MILLIGRAM, TID, EVERY 8 H,DOSE TITRATED TO 300MGX3
     Dates: start: 20210403
  5. COMIRNATY (TOZINAMERAN) [Suspect]
     Active Substance: TOZINAMERAN
     Indication: COVID-19 immunisation
     Dates: start: 20210324, end: 20210324
  6. COMIRNATY (TOZINAMERAN) [Suspect]
     Active Substance: TOZINAMERAN
     Indication: Immunisation
     Route: 030
     Dates: start: 20210324, end: 20210324
  7. COMIRNATY (TOZINAMERAN) [Suspect]
     Active Substance: TOZINAMERAN
     Route: 030
     Dates: start: 20210324, end: 20210324
  8. COMIRNATY (TOZINAMERAN) [Suspect]
     Active Substance: TOZINAMERAN
     Dates: start: 20210324, end: 20210324
  9. TRAMADOL [Interacting]
     Active Substance: TRAMADOL
     Indication: Pain
  10. TRAMADOL [Interacting]
     Active Substance: TRAMADOL
     Route: 065
  11. TRAMADOL [Interacting]
     Active Substance: TRAMADOL
     Route: 065
  12. TRAMADOL [Interacting]
     Active Substance: TRAMADOL
  13. EZETIMIBE [Concomitant]
     Active Substance: EZETIMIBE
     Indication: Product used for unknown indication
  14. EZETIMIBE [Concomitant]
     Active Substance: EZETIMIBE
     Route: 065
  15. EZETIMIBE [Concomitant]
     Active Substance: EZETIMIBE
     Route: 065
  16. EZETIMIBE [Concomitant]
     Active Substance: EZETIMIBE
  17. BACTRIM [Concomitant]
     Active Substance: SULFAMETHOXAZOLE\TRIMETHOPRIM
     Indication: Product used for unknown indication
     Dosage: 1 DF, 2X/DAY, FREQUENCY: 12 H
  18. BACTRIM [Concomitant]
     Active Substance: SULFAMETHOXAZOLE\TRIMETHOPRIM
     Dosage: 1 DF, 2X/DAY, FREQUENCY: 12 H
     Route: 065
  19. BACTRIM [Concomitant]
     Active Substance: SULFAMETHOXAZOLE\TRIMETHOPRIM
     Dosage: 1 DF, 2X/DAY, FREQUENCY: 12 H
     Route: 065
  20. BACTRIM [Concomitant]
     Active Substance: SULFAMETHOXAZOLE\TRIMETHOPRIM
     Dosage: 1 DF, 2X/DAY, FREQUENCY: 12 H
  21. Behepan [Concomitant]
     Indication: Product used for unknown indication
  22. Behepan [Concomitant]
     Route: 065
  23. Behepan [Concomitant]
     Route: 065
  24. Behepan [Concomitant]
  25. MOXONIDINE [Concomitant]
     Active Substance: MOXONIDINE
     Indication: Product used for unknown indication
  26. MOXONIDINE [Concomitant]
     Active Substance: MOXONIDINE
     Route: 065
  27. MOXONIDINE [Concomitant]
     Active Substance: MOXONIDINE
     Route: 065
  28. MOXONIDINE [Concomitant]
     Active Substance: MOXONIDINE
  29. AZITHROMYCIN ANHYDROUS [Concomitant]
     Active Substance: AZITHROMYCIN ANHYDROUS
     Indication: Product used for unknown indication
     Dosage: 500 MG, 1X/DAY
  30. AZITHROMYCIN ANHYDROUS [Concomitant]
     Active Substance: AZITHROMYCIN ANHYDROUS
     Dosage: 500 MG, 1X/DAY
     Route: 048
  31. AZITHROMYCIN ANHYDROUS [Concomitant]
     Active Substance: AZITHROMYCIN ANHYDROUS
     Dosage: 500 MG, 1X/DAY
     Route: 048
  32. AZITHROMYCIN ANHYDROUS [Concomitant]
     Active Substance: AZITHROMYCIN ANHYDROUS
     Dosage: 500 MG, 1X/DAY
  33. Paralgin forte [Concomitant]
     Indication: Product used for unknown indication
  34. Paralgin forte [Concomitant]
     Route: 065
  35. Paralgin forte [Concomitant]
     Route: 065
  36. Paralgin forte [Concomitant]
  37. DUTASTERIDE\TAMSULOSIN [Concomitant]
     Active Substance: DUTASTERIDE\TAMSULOSIN
     Indication: Product used for unknown indication
  38. DUTASTERIDE\TAMSULOSIN [Concomitant]
     Active Substance: DUTASTERIDE\TAMSULOSIN
     Route: 065
  39. DUTASTERIDE\TAMSULOSIN [Concomitant]
     Active Substance: DUTASTERIDE\TAMSULOSIN
     Route: 065
  40. DUTASTERIDE\TAMSULOSIN [Concomitant]
     Active Substance: DUTASTERIDE\TAMSULOSIN
  41. ACETAMINOPHEN [Concomitant]
     Active Substance: ACETAMINOPHEN
     Indication: Product used for unknown indication
  42. ACETAMINOPHEN [Concomitant]
     Active Substance: ACETAMINOPHEN
     Route: 065
  43. ACETAMINOPHEN [Concomitant]
     Active Substance: ACETAMINOPHEN
     Route: 065
  44. ACETAMINOPHEN [Concomitant]
     Active Substance: ACETAMINOPHEN
  45. Furix [Concomitant]
     Indication: Product used for unknown indication
  46. Furix [Concomitant]
     Route: 065
  47. Furix [Concomitant]
     Route: 065
  48. Furix [Concomitant]
  49. MIRABEGRON [Concomitant]
     Active Substance: MIRABEGRON
     Indication: Product used for unknown indication
  50. MIRABEGRON [Concomitant]
     Active Substance: MIRABEGRON
     Route: 065
  51. MIRABEGRON [Concomitant]
     Active Substance: MIRABEGRON
     Route: 065
  52. MIRABEGRON [Concomitant]
     Active Substance: MIRABEGRON
  53. AMLODIPINE [Concomitant]
     Active Substance: AMLODIPINE BESYLATE
     Indication: Product used for unknown indication
  54. AMLODIPINE [Concomitant]
     Active Substance: AMLODIPINE BESYLATE
     Route: 065
  55. AMLODIPINE [Concomitant]
     Active Substance: AMLODIPINE BESYLATE
     Route: 065
  56. AMLODIPINE [Concomitant]
     Active Substance: AMLODIPINE BESYLATE
  57. ALLOPURINOL [Concomitant]
     Active Substance: ALLOPURINOL
     Indication: Product used for unknown indication
  58. ALLOPURINOL [Concomitant]
     Active Substance: ALLOPURINOL
     Route: 065
  59. ALLOPURINOL [Concomitant]
     Active Substance: ALLOPURINOL
     Route: 065
  60. ALLOPURINOL [Concomitant]
     Active Substance: ALLOPURINOL
  61. PLAVIX [Concomitant]
     Active Substance: CLOPIDOGREL BISULFATE
     Indication: Product used for unknown indication
  62. PLAVIX [Concomitant]
     Active Substance: CLOPIDOGREL BISULFATE
     Route: 065
  63. PLAVIX [Concomitant]
     Active Substance: CLOPIDOGREL BISULFATE
     Route: 065
  64. PLAVIX [Concomitant]
     Active Substance: CLOPIDOGREL BISULFATE
  65. Renitec [Concomitant]
     Indication: Product used for unknown indication
  66. Renitec [Concomitant]
     Route: 065
  67. Renitec [Concomitant]
     Route: 065
  68. Renitec [Concomitant]
  69. CARVEDILOL [Concomitant]
     Active Substance: CARVEDILOL
     Indication: Product used for unknown indication
  70. CARVEDILOL [Concomitant]
     Active Substance: CARVEDILOL
     Route: 065
  71. CARVEDILOL [Concomitant]
     Active Substance: CARVEDILOL
     Route: 065
  72. CARVEDILOL [Concomitant]
     Active Substance: CARVEDILOL

REACTIONS (15)
  - Polyneuropathy [Fatal]
  - Pain [Fatal]
  - Muscular weakness [Fatal]
  - Spinal stenosis [Fatal]
  - Myopathy [Fatal]
  - Poisoning [Fatal]
  - Drug interaction [Fatal]
  - Renal failure [Fatal]
  - Cardiac arrest [Fatal]
  - Gait disturbance [Unknown]
  - Dyspnoea [Unknown]
  - Pallor [Unknown]
  - Confusional state [Unknown]
  - Blood pressure decreased [Unknown]
  - Oxygen saturation decreased [Unknown]

NARRATIVE: CASE EVENT DATE: 20210328
